FAERS Safety Report 11089984 (Version 2)
Quarter: 2016Q1

REPORT INFORMATION
  Report Type: Spontaneous
  Country: EG (occurrence: EG)
  Receive Date: 20150505
  Receipt Date: 20160210
  Transmission Date: 20160525
  Serious: Yes (Other)
  Sender: FDA-Public Use
  Company Number: EG-ASTELLAS-2015US015011

PATIENT
  Age: 47 Year
  Sex: Female

DRUGS (2)
  1. FLUCONAZOLE. [Concomitant]
     Active Substance: FLUCONAZOLE
     Indication: PRODUCT USED FOR UNKNOWN INDICATION
     Dosage: UNK UNK, UNKNOWN FREQ.
     Route: 065
  2. AMBISOME [Suspect]
     Active Substance: AMPHOTERICIN B
     Indication: CANDIDA INFECTION
     Dosage: UNK, UNKNOWN FREQ.
     Route: 031

REACTIONS (6)
  - Visual acuity reduced [Unknown]
  - Uveitis [Unknown]
  - Ocular toxicity [Recovered/Resolved]
  - Hypopyon [Recovered/Resolved]
  - Drug ineffective [Unknown]
  - Off label use [Unknown]
